FAERS Safety Report 7381572-4 (Version None)
Quarter: 2011Q1

REPORT INFORMATION
  Report Type: 
  Country: None (occurrence: None)
  Receive Date: 20110329
  Receipt Date: 20110322
  Transmission Date: 20110831
  Serious: Yes (Hospitalization)
  Sender: FDA-Public Use
  Company Number: GB-BRISTOL-MYERS SQUIBB COMPANY-12703914

PATIENT
  Age: 40 Year
  Sex: Female
  Weight: 50 kg

DRUGS (7)
  1. GEMCITABINE [Suspect]
     Indication: BREAST CANCER
     Dosage: 09AUG04-09AUG04,22JUN04-UNK,CYCLE:1
     Route: 042
     Dates: start: 20040809
  2. CYCLOPHOSPHAMIDE [Suspect]
     Indication: BREAST CANCER
     Dates: start: 20040601
  3. TRAMADOL [Suspect]
     Dates: start: 20040601, end: 20040701
  4. PACLITAXEL [Suspect]
     Indication: BREAST CANCER
     Dosage: 09AUG04-09AUG04,22JUN04-UNK,CYCLE:1
     Route: 042
     Dates: start: 20040809
  5. EPIRUBICIN [Suspect]
     Indication: BREAST CANCER
     Dates: start: 20040601
  6. CIPROFLOXACIN [Concomitant]
     Dates: start: 20040601, end: 20040701
  7. VOLTAREN [Concomitant]
     Dates: start: 20040601, end: 20040701

REACTIONS (9)
  - MYALGIA [None]
  - CHEST PAIN [None]
  - LIVER FUNCTION TEST ABNORMAL [None]
  - NEUTROPENIA [None]
  - ARTHRALGIA [None]
  - DYSPNOEA [None]
  - PYREXIA [None]
  - RASH PRURITIC [None]
  - NAUSEA [None]
